FAERS Safety Report 4633188-8 (Version None)
Quarter: 2005Q2

REPORT INFORMATION
  Report Type: 
  Country: None (occurrence: None)
  Receive Date: 20050411
  Receipt Date: 20050411
  Transmission Date: 20051028
  Serious: No
  Sender: FDA-Public Use
  Company Number: None

PATIENT
  Sex: Male
  Weight: 58.8 kg

DRUGS (3)
  1. PACLITAXEL [Suspect]
     Indication: TESTICULAR SEMINOMA (PURE)
     Dates: start: 20040716
  2. CISPLATIN [Suspect]
  3. IFOSFAMIDE [Suspect]

REACTIONS (2)
  - ASPIRATION [None]
  - VOMITING [None]
